FAERS Safety Report 14763725 (Version 13)
Quarter: 2024Q2

REPORT INFORMATION
  Report Type: Spontaneous
  Country: CZ (occurrence: CZ)
  Receive Date: 20180416
  Receipt Date: 20240403
  Transmission Date: 20240716
  Serious: Yes (Other)
  Sender: FDA-Public Use
  Company Number: CZ-GLPHARMA-18.0117

PATIENT
  Age: 28 Year
  Sex: Female

DRUGS (17)
  1. LEVETIRACETAM [Suspect]
     Active Substance: LEVETIRACETAM
     Indication: Epilepsy
     Dosage: 2X 500 MG 1000 MILLIGRAM DAILY
     Route: 048
     Dates: start: 201503
  2. LEVETIRACETAM [Suspect]
     Active Substance: LEVETIRACETAM
     Indication: Seizure
     Dosage: 1000 MILLIGRAM DAILY (500 MG,QD)
     Route: 048
     Dates: start: 2015, end: 2015
  3. LEVETIRACETAM [Suspect]
     Active Substance: LEVETIRACETAM
     Indication: Generalised tonic-clonic seizure
     Dosage: 500 MILLIGRAM, QD
     Route: 048
     Dates: start: 2015, end: 2015
  4. LEVETIRACETAM [Suspect]
     Active Substance: LEVETIRACETAM
     Dosage: 2X 500 MG
  5. LACOSAMIDE [Suspect]
     Active Substance: LACOSAMIDE
     Indication: Epilepsy
     Dosage: 150 MILLIGRAM, BID, 2X 150 MG
     Route: 065
  6. LACOSAMIDE [Suspect]
     Active Substance: LACOSAMIDE
     Dosage: 150 MILLIGRAM, QD, 2X 150 MG
     Route: 065
  7. VALPROIC ACID [Suspect]
     Active Substance: VALPROIC ACID
     Indication: Epilepsy
     Dosage: 1500 MILLIGRAM, QD 2X 750 MG
     Route: 048
     Dates: start: 2007, end: 2008
  8. VALPROIC ACID [Suspect]
     Active Substance: VALPROIC ACID
     Dosage: 2000 MILLIGRAM, 2X 1000 MG
     Route: 048
     Dates: start: 2008
  9. VALPROIC ACID [Suspect]
     Active Substance: VALPROIC ACID
     Dosage: 1500 MILLIGRAM, 2X 750 MG
     Route: 048
  10. VALPROIC ACID [Suspect]
     Active Substance: VALPROIC ACID
     Dosage: 2000 MILLIGRAM, QD 2X 1000 MG
     Route: 048
     Dates: start: 2008
  11. VALPROIC ACID [Suspect]
     Active Substance: VALPROIC ACID
     Dosage: 500 MILLIGRAM, QD 250 MG, BID
     Route: 048
     Dates: start: 2015
  12. LAMOTRIGINE [Suspect]
     Active Substance: LAMOTRIGINE
     Indication: Generalised tonic-clonic seizure
     Dosage: 300 MILLIGRAM, QD, 2X 150 MG
     Route: 048
     Dates: start: 2008
  13. LAMOTRIGINE [Suspect]
     Active Substance: LAMOTRIGINE
     Indication: Seizure
     Dosage: 300 MILLIGRAM, 2X 150 MG
     Route: 065
  14. LAMOTRIGINE [Suspect]
     Active Substance: LAMOTRIGINE
     Indication: Epilepsy congenital
  15. PERAMPANEL [Concomitant]
     Active Substance: PERAMPANEL
     Indication: Product used for unknown indication
     Dosage: 6 MG, QD
     Route: 065
  16. LAMOTRIGINE [Concomitant]
     Active Substance: LAMOTRIGINE
     Indication: Generalised tonic-clonic seizure
     Dosage: UNK
     Route: 065
  17. LAMOTRIGINE [Concomitant]
     Active Substance: LAMOTRIGINE
     Indication: Seizure
     Dosage: 300 MILLIGRAM, QD 2 X 150 MG
     Route: 065

REACTIONS (17)
  - Lipids abnormal [Recovered/Resolved]
  - Tremor [Unknown]
  - Dizziness [Unknown]
  - Hepatic enzyme increased [Recovered/Resolved]
  - Seizure [Recovered/Resolved]
  - Weight increased [Recovered/Resolved]
  - Headache [Recovered/Resolved]
  - Generalised tonic-clonic seizure [Recovered/Resolved]
  - Gamma-glutamyltransferase increased [Recovered/Resolved]
  - Injury [Unknown]
  - Depression [Recovered/Resolved]
  - Anxiety [Recovered/Resolved]
  - Lipids [Recovered/Resolved]
  - Clavicle fracture [Unknown]
  - Joint dislocation [Unknown]
  - Nausea [Unknown]
  - Therapeutic product effect incomplete [Unknown]

NARRATIVE: CASE EVENT DATE: 20150101
